APPROVED DRUG PRODUCT: SEFFIN
Active Ingredient: CEPHALOTHIN SODIUM
Strength: EQ 10GM BASE/VIAL
Dosage Form/Route: INJECTABLE;INJECTION
Application: A062435 | Product #003
Applicant: GLAXOSMITHKLINE
Approved: Nov 15, 1983 | RLD: No | RS: No | Type: DISCN